FAERS Safety Report 21753821 (Version 1)
Quarter: 2022Q4

REPORT INFORMATION
  Report Type: Other
  Country: None (occurrence: IT)
  Receive Date: 20221220
  Receipt Date: 20221220
  Transmission Date: 20230112
  Serious: Yes (Other)
  Sender: FDA-Public Use
  Company Number: IT-B.Braun Medical Inc.-2135998

PATIENT
  Age: 67 Year
  Sex: Male

DRUGS (27)
  1. CEFTRIAXONE SODIUM [Suspect]
     Active Substance: CEFTRIAXONE SODIUM
  2. HYDROXYCHLOROQUINE [Suspect]
     Active Substance: HYDROXYCHLOROQUINE
  3. PIPERACILLIN AND TAZOBACTAM [Suspect]
     Active Substance: PIPERACILLIN SODIUM\TAZOBACTAM SODIUM
  4. LOPINAVIR-RITONAVIR [Suspect]
     Active Substance: LOPINAVIR\RITONAVIR
  5. ANAKINRA [Suspect]
     Active Substance: ANAKINRA
  6. PROPOFOL [Suspect]
     Active Substance: PROPOFOL
  7. FENTANYL [Suspect]
     Active Substance: FENTANYL
  8. CISATRACURIUM [Suspect]
     Active Substance: CISATRACURIUM
  9. LINEZOLID [Suspect]
     Active Substance: LINEZOLID
  10. VITAMIN B1 [Suspect]
     Active Substance: THIAMINE HYDROCHLORIDE
  11. IOPROMIDE [Suspect]
     Active Substance: IOPROMIDE
  12. OMEPRAZOLE [Suspect]
     Active Substance: OMEPRAZOLE
  13. FUROSEMIDE [Suspect]
     Active Substance: FUROSEMIDE
  14. ENOXAPARIN SODIUM [Suspect]
     Active Substance: ENOXAPARIN SODIUM
  15. QUETIAPINE [Suspect]
     Active Substance: QUETIAPINE
  16. NOREPINEPHRINE [Suspect]
     Active Substance: NOREPINEPHRINE
  17. ALPROSTADIL [Suspect]
     Active Substance: ALPROSTADIL
  18. ETHACRYNIC ACID [Suspect]
     Active Substance: ETHACRYNIC ACID
  19. MIDAZOLAM [Suspect]
     Active Substance: MIDAZOLAM
  20. LABETALOL [Suspect]
     Active Substance: LABETALOL\LABETALOL HYDROCHLORIDE
  21. CLONIDINE [Suspect]
     Active Substance: CLONIDINE
  22. ACETAZOLAMIDE [Suspect]
     Active Substance: ACETAZOLAMIDE
  23. FLUVOXAMINE [Suspect]
     Active Substance: FLUVOXAMINE
  24. PREDNISONE [Suspect]
     Active Substance: PREDNISONE
  25. HYDROXYZINE [Suspect]
     Active Substance: HYDROXYZINE HYDROCHLORIDE
  26. TIGECYCLINE [Suspect]
     Active Substance: TIGECYCLINE
  27. DAPTOMYCIN [Suspect]
     Active Substance: DAPTOMYCIN

REACTIONS (1)
  - Drug reaction with eosinophilia and systemic symptoms [Recovered/Resolved]
